FAERS Safety Report 7639978-1 (Version None)
Quarter: 2011Q3

REPORT INFORMATION
  Report Type: 
  Country: None (occurrence: None)
  Receive Date: 20110727
  Receipt Date: 20110718
  Transmission Date: 20111222
  Serious: Yes (Other)
  Sender: FDA-Public Use
  Company Number: AR-AMGEN-KDC413995

PATIENT
  Age: 49 Year
  Sex: Female

DRUGS (4)
  1. DENOSUMAB [Suspect]
     Indication: METASTASES TO BONE
     Dosage: UNK UNK, UNK
     Dates: start: 20070301
  2. HERCEPTIN [Concomitant]
     Dosage: UNK UNK, Q3WK
     Dates: start: 20070301
  3. LEUPROLIDE ACETATE [Concomitant]
     Dosage: UNK UNK, QMO
  4. FEMARA [Concomitant]
     Dosage: UNK UNK, QD

REACTIONS (1)
  - OSTEONECROSIS [None]
